FAERS Safety Report 7318794-4 (Version None)
Quarter: 2011Q1

REPORT INFORMATION
  Report Type: 
  Country: None (occurrence: None)
  Receive Date: 20110228
  Receipt Date: 20100920
  Transmission Date: 20110831
  Serious: No
  Sender: FDA-Public Use
  Company Number: A0864381A

PATIENT
  Sex: Female

DRUGS (2)
  1. IMITREX [Suspect]
     Route: 065
  2. IMITREX [Suspect]
     Indication: MIGRAINE
     Dosage: 100MG AS DIRECTED
     Route: 048

REACTIONS (4)
  - DRUG ADMINISTRATION ERROR [None]
  - BLOOD PRESSURE INCREASED [None]
  - MIGRAINE [None]
  - NUCLEAR MAGNETIC RESONANCE IMAGING BRAIN ABNORMAL [None]
